FAERS Safety Report 6288243-6 (Version None)
Quarter: 2009Q3

REPORT INFORMATION
  Report Type: 
  Country: None (occurrence: None)
  Receive Date: 20090729
  Receipt Date: 20090722
  Transmission Date: 20100115
  Serious: Yes (Death, Other)
  Sender: FDA-Public Use
  Company Number: US-KINGPHARMUSA00001-K200900871

PATIENT
  Age: 25 Year
  Sex: Female

DRUGS (2)
  1. AVINZA [Suspect]
     Indication: PAIN IN EXTREMITY
     Dosage: 240 MG, SINGLE
     Dates: start: 20090714, end: 20090714
  2. OXYCODONE [Suspect]
     Dosage: UNK

REACTIONS (5)
  - ABNORMAL BEHAVIOUR [None]
  - DRUG ABUSER [None]
  - DRUG DIVERSION [None]
  - HALLUCINATION [None]
  - OVERDOSE [None]
